FAERS Safety Report 24653757 (Version 1)
Quarter: 2024Q4

REPORT INFORMATION
  Report Type: Spontaneous
  Country: US (occurrence: US)
  Receive Date: 20241122
  Receipt Date: 20241122
  Transmission Date: 20250114
  Serious: No
  Sender: NOVO NORDISK
  Company Number: US-NOVOPROD-1216990

PATIENT
  Age: 67 Year
  Sex: Female

DRUGS (1)
  1. TRESIBA [Suspect]
     Active Substance: INSULIN DEGLUDEC
     Indication: Type 2 diabetes mellitus
     Dosage: 18 IU, QD
     Route: 058
     Dates: start: 20240419, end: 20240423

REACTIONS (9)
  - Cough [Recovered/Resolved]
  - Tremor [Recovered/Resolved]
  - Headache [Recovered/Resolved]
  - Thyroid pain [Recovered/Resolved]
  - Fatigue [Recovering/Resolving]
  - Brain fog [Recovered/Resolved]
  - Erythema [Recovered/Resolved]
  - Neck pain [Recovered/Resolved]
  - Blood glucose increased [Recovered/Resolved]

NARRATIVE: CASE EVENT DATE: 20240419
